FAERS Safety Report 16738813 (Version 2)
Quarter: 2019Q3

REPORT INFORMATION
  Report Type: Report from Study
  Country: None (occurrence: ZA)
  Receive Date: 20190826
  Receipt Date: 20190829
  Transmission Date: 20191005
  Serious: Yes (Other)
  Sender: FDA-Public Use
  Company Number: ZA-ABBVIE-19K-143-2897015-00

PATIENT
  Age: 71 Year
  Sex: Male

DRUGS (1)
  1. HUMIRA [Suspect]
     Active Substance: ADALIMUMAB
     Indication: RHEUMATOID ARTHRITIS
     Route: 058
     Dates: start: 20190807

REACTIONS (1)
  - Inguinal hernia [Not Recovered/Not Resolved]

NARRATIVE: CASE EVENT DATE: 20190819
